FAERS Safety Report 7727101-4 (Version None)
Quarter: 2011Q3

REPORT INFORMATION
  Report Type: 
  Country: None (occurrence: None)
  Receive Date: 20110902
  Receipt Date: 20110824
  Transmission Date: 20111222
  Serious: Yes (Hospitalization, Other)
  Sender: FDA-Public Use
  Company Number: US-ASTRAZENECA-2011SE42644

PATIENT
  Age: 83 Year
  Sex: Male
  Weight: 96.2 kg

DRUGS (13)
  1. SEROQUEL [Suspect]
     Indication: DEMENTIA WITH LEWY BODIES
     Route: 048
  2. CITALOPRAM HYDROBROMIDE [Concomitant]
     Indication: ANTIDEPRESSANT THERAPY
     Route: 048
     Dates: start: 20090101
  3. LIPITOR [Concomitant]
     Indication: HYPERCHOLESTEROLAEMIA
     Route: 048
  4. NAMENDA [Concomitant]
     Indication: MEMORY IMPAIRMENT
     Route: 048
     Dates: start: 20070201
  5. DIGOXIN [Concomitant]
     Indication: CARDIAC DISORDER
     Route: 048
  6. CAREDILOL [Concomitant]
     Indication: CARDIAC DISORDER
     Route: 048
     Dates: start: 19990101
  7. SEROQUEL [Suspect]
     Indication: ABNORMAL BEHAVIOUR
     Route: 048
  8. SEROQUEL [Suspect]
     Route: 048
  9. EXELON [Concomitant]
     Route: 050
     Dates: start: 20090101
  10. SEROQUEL [Suspect]
     Route: 048
  11. COUMADIN [Concomitant]
     Indication: ANTICOAGULANT THERAPY
     Route: 048
     Dates: start: 19910101
  12. SEROQUEL [Suspect]
     Route: 048
  13. SEROQUEL [Suspect]
     Route: 048

REACTIONS (6)
  - BLADDER CANCER [None]
  - COGNITIVE DISORDER [None]
  - ABNORMAL BEHAVIOUR [None]
  - OFF LABEL USE [None]
  - LOWER LIMB FRACTURE [None]
  - PROSTATE CANCER [None]
